FAERS Safety Report 5115058-4 (Version None)
Quarter: 2006Q3

REPORT INFORMATION
  Report Type: 
  Country: None (occurrence: None)
  Receive Date: 20060921
  Receipt Date: 20060829
  Transmission Date: 20061208
  Serious: Yes (Other)
  Sender: FDA-Public Use
  Company Number: 2006RR-03663

PATIENT
  Age: 79 Year
  Sex: Male
  Weight: 82.7 kg

DRUGS (13)
  1. SIMVASTATIN [Suspect]
     Indication: MYOCARDIAL ISCHAEMIA
     Dosage: 40 MG,
     Dates: start: 20040329, end: 20060530
  2. EZETIMIDE (EZETIMIDE) [Suspect]
     Dosage: 10 MG,
     Dates: start: 20060711, end: 20060815
  3. DISPERSIBLE ASPIRIN                   BP 75MG (ASPIRIN) TABLET [Concomitant]
  4. BECLOMETHASONE DIPROPIONATE [Concomitant]
  5. BISOPROLOL             5MG (BISOPROLOL FUMARATE) [Concomitant]
  6. GLYCERYL TRINITRATE [Concomitant]
  7. ISOSORBIDE MONONITRATE [Concomitant]
  8. NICORANDIL [Concomitant]
  9. PARACETAMOL (PARACETAMOL) TABLET [Concomitant]
  10. RABEPRAZOLE SODIUM [Concomitant]
  11. RAMIPRIL [Concomitant]
  12. RANITIDINE 300 MG TABLETS (RANITIDINE) TABLET [Concomitant]
  13. SENNA [Concomitant]

REACTIONS (2)
  - BLOOD CREATINE PHOSPHOKINASE INCREASED [None]
  - MYALGIA [None]
